FAERS Safety Report 25068400 (Version 1)
Quarter: 2025Q1

REPORT INFORMATION
  Report Type: Spontaneous
  Country: US (occurrence: None)
  Receive Date: 20250312
  Receipt Date: 20250312
  Transmission Date: 20250408
  Serious: Yes (Other)
  Sender: FDA-CTU
  Company Number: None

PATIENT
  Sex: Male

DRUGS (4)
  1. KESIMPTA [Suspect]
     Active Substance: OFATUMUMAB
     Indication: Multiple sclerosis
     Dosage: FREQUENCY : MONTHLY;?
     Route: 058
     Dates: start: 20240918
  2. ASCORBIC ACD TAB 1000MG [Concomitant]
  3. IBIOTIN CAP 10MG [Concomitant]
  4. D3-1000 CAP 1000UNIT [Concomitant]

REACTIONS (2)
  - Neoplasm malignant [None]
  - Therapy interrupted [None]
